FAERS Safety Report 24718107 (Version 2)
Quarter: 2024Q4

REPORT INFORMATION
  Report Type: Spontaneous
  Country: US (occurrence: US)
  Receive Date: 20241210
  Receipt Date: 20241219
  Transmission Date: 20250115
  Serious: Yes (Other)
  Sender: AMGEN
  Company Number: US-AMGEN-USASP2024238475

PATIENT
  Age: 46 Year
  Sex: Female
  Weight: 61.33 kg

DRUGS (2)
  1. NEULASTA [Suspect]
     Active Substance: PEGFILGRASTIM
     Indication: Prophylaxis
     Dosage: UNK, CYCLICAL
     Route: 065
  2. NEULASTA [Suspect]
     Active Substance: PEGFILGRASTIM
     Dosage: UNK, CYCLICAL
     Route: 065

REACTIONS (2)
  - Neutrophil count abnormal [Unknown]
  - Device malfunction [Unknown]

NARRATIVE: CASE EVENT DATE: 20241121
